FAERS Safety Report 21997896 (Version 1)
Quarter: 2023Q1

REPORT INFORMATION
  Report Type: Spontaneous
  Country: US (occurrence: US)
  Receive Date: 20230216
  Receipt Date: 20230216
  Transmission Date: 20230417
  Serious: Yes (Other)
  Sender: FDA-Public Use
  Company Number: US-BRISTOL-MYERS SQUIBB COMPANY-2023-020576

PATIENT
  Age: 78 Year
  Sex: Male

DRUGS (1)
  1. LENALIDOMIDE [Suspect]
     Active Substance: LENALIDOMIDE
     Indication: Bone disorder
     Dosage: FREQUENCY: DAILY FOR 21 DAYS ON AND 7 DAYS OFF
     Route: 048
     Dates: start: 20221031

REACTIONS (2)
  - Cataract [Recovered/Resolved]
  - Off label use [Unknown]
